FAERS Safety Report 22038296 (Version 1)
Quarter: 2023Q1

REPORT INFORMATION
  Report Type: Report from Study
  Country: US (occurrence: US)
  Receive Date: 20230227
  Receipt Date: 20230227
  Transmission Date: 20230418
  Serious: Yes (Hospitalization, Other)
  Sender: FDA-Public Use
  Company Number: US-ABBVIE-4319530

PATIENT
  Sex: Male

DRUGS (1)
  1. RINVOQ [Suspect]
     Active Substance: UPADACITINIB
     Indication: Colitis ulcerative
     Dosage: FORM STRENGTH WAS 45 MILLIGRAM
     Route: 048
     Dates: start: 20230209

REACTIONS (10)
  - Nephrolithiasis [Unknown]
  - Type 2 diabetes mellitus [Unknown]
  - Infection [Unknown]
  - Diarrhoea [Recovered/Resolved]
  - Haemorrhage [Recovered/Resolved]
  - Stent placement [Unknown]
  - Pyrexia [Unknown]
  - Hypotension [Unknown]
  - Dizziness [Unknown]
  - Medical device site pain [Unknown]
